FAERS Safety Report 11069407 (Version 5)
Quarter: 2015Q3

REPORT INFORMATION
  Report Type: Spontaneous
  Country: US (occurrence: US)
  Receive Date: 20150427
  Receipt Date: 20150810
  Transmission Date: 20151125
  Serious: No
  Sender: FDA-Public Use
  Company Number: US-PFIZER INC-2015141487

PATIENT
  Age: 78 Year
  Sex: Female
  Weight: 102 kg

DRUGS (7)
  1. VITAMIN E [Concomitant]
     Active Substance: .ALPHA.-TOCOPHEROL
     Dosage: 1000 UNITS, 1X/DAY
  2. OMEGA 3/VITAMIN E [Concomitant]
     Dosage: 1000 UNITS, 1X/DAY
  3. VITAMIN C [Concomitant]
     Active Substance: ASCORBIC ACID
     Dosage: 1000 UNITS, 1X/DAY
  4. CELECOXIB. [Suspect]
     Active Substance: CELECOXIB
     Indication: PAIN IN EXTREMITY
     Dosage: 200 MG, ONCE DAILY
     Route: 048
     Dates: start: 20150206
  5. POTASSIUM [Concomitant]
     Active Substance: POTASSIUM
     Dosage: UNK, 2X/DAY
     Route: 048
  6. VITAMIN D [Concomitant]
     Active Substance: CHOLECALCIFEROL
     Dosage: 1000 UNITS, 1X/DAY
  7. CELECOXIB. [Suspect]
     Active Substance: CELECOXIB
     Indication: ARTHRALGIA
     Dosage: 200 MG, 1X/DAY
     Dates: start: 201308

REACTIONS (8)
  - Drug ineffective [Unknown]
  - Balance disorder [Unknown]
  - Pain in extremity [Unknown]
  - Muscular weakness [Unknown]
  - Gait disturbance [Not Recovered/Not Resolved]
  - Headache [Not Recovered/Not Resolved]
  - Arthralgia [Not Recovered/Not Resolved]
  - Back pain [Not Recovered/Not Resolved]

NARRATIVE: CASE EVENT DATE: 2015
